FAERS Safety Report 14573818 (Version 1)
Quarter: 2018Q1

REPORT INFORMATION
  Report Type: Report from Study
  Country: NL (occurrence: NL)
  Receive Date: 20180226
  Receipt Date: 20180226
  Transmission Date: 20180509
  Serious: Yes (Hospitalization)
  Sender: FDA-Public Use
  Company Number: NL-ROCHE-2074907

PATIENT
  Age: 70 Year
  Sex: Female

DRUGS (3)
  1. CARBOPLATIN. [Suspect]
     Active Substance: CARBOPLATIN
     Indication: NON-SMALL CELL LUNG CANCER
     Dosage: AUC 6?MOST RECENT DOSE OF CARBOPLATIN PRIOR TO EVENT ONSET WAS ON 08/JAN/2018 (650 MG)
     Route: 042
     Dates: start: 20171129
  2. BEVACIZUMAB. [Suspect]
     Active Substance: BEVACIZUMAB
     Indication: NON-SMALL CELL LUNG CANCER
     Dosage: MOST RECENT DOSE OF BEVACIZUMAB PRIOR TO EVENT ONSET WAS ON 02/FEB/2018 (1100 MG)
     Route: 042
     Dates: start: 20171129
  3. PACLITAXEL. [Suspect]
     Active Substance: PACLITAXEL
     Indication: NON-SMALL CELL LUNG CANCER
     Dosage: MOST RECENT DOSE OF PACLITAXEL PRIOR TO EVENT ONSET WAS ON 05/JAN/2018 (360 MG)
     Route: 042
     Dates: start: 20171129

REACTIONS (1)
  - Hypercalcaemia [Unknown]

NARRATIVE: CASE EVENT DATE: 20180209
